FAERS Safety Report 24137596 (Version 3)
Quarter: 2025Q3

REPORT INFORMATION
  Report Type: Spontaneous
  Country: US (occurrence: US)
  Receive Date: 20240725
  Receipt Date: 20250922
  Transmission Date: 20251020
  Serious: Yes (Other)
  Sender: PFIZER
  Company Number: US-PFIZER INC-202400223326

PATIENT
  Age: 70 Year
  Sex: Female

DRUGS (10)
  1. XELJANZ XR [Suspect]
     Active Substance: TOFACITINIB CITRATE
  2. DULOXETINE [Concomitant]
     Active Substance: DULOXETINE
  3. AMOXICILLIN [Concomitant]
     Active Substance: AMOXICILLIN
  4. PREDNISONE [Concomitant]
     Active Substance: PREDNISONE
  5. CLARITIN [Concomitant]
     Active Substance: LORATADINE
  6. LEXAPRO [Concomitant]
     Active Substance: ESCITALOPRAM OXALATE
  7. PRILOSEC [Concomitant]
     Active Substance: OMEPRAZOLE MAGNESIUM
  8. MIRAPEX [Concomitant]
     Active Substance: PRAMIPEXOLE DIHYDROCHLORIDE
  9. ZOLEDRONIC [Concomitant]
     Active Substance: ZOLEDRONIC ACID
  10. ANTIVERT [Concomitant]
     Active Substance: MECLIZINE HYDROCHLORIDE

REACTIONS (3)
  - Shoulder operation [Unknown]
  - Peripheral swelling [Unknown]
  - Vertigo [Recovering/Resolving]
